FAERS Safety Report 4292638-X (Version None)
Quarter: 2004Q1

REPORT INFORMATION
  Report Type: 
  Country: None (occurrence: None)
  Receive Date: 20040211
  Receipt Date: 20040203
  Transmission Date: 20041129
  Serious: Yes (Other)
  Sender: FDA-Public Use
  Company Number: PHEH2004US01507

PATIENT
  Age: 52 Year
  Sex: Female

DRUGS (4)
  1. ZELNORM [Suspect]
     Indication: IRRITABLE BOWEL SYNDROME
     Dosage: UNK,UNK
     Route: 048
     Dates: start: 20040101, end: 20040128
  2. SYNTHROID [Concomitant]
  3. TOPAMAX [Concomitant]
  4. BENADRYL ^ACHE^ [Concomitant]

REACTIONS (1)
  - MANIA [None]
